FAERS Safety Report 9168758 (Version 1)
Quarter: 2013Q1

REPORT INFORMATION
  Report Type: Spontaneous
  Country: US (occurrence: US)
  Receive Date: 20130318
  Receipt Date: 20130318
  Transmission Date: 20140127
  Serious: No
  Sender: FDA-Public Use
  Company Number: US-ASTRAZENECA-2013SE15264

PATIENT
  Age: 52 Year
  Sex: Female
  Weight: 68 kg

DRUGS (2)
  1. SYMBICORT [Suspect]
     Indication: CHRONIC OBSTRUCTIVE PULMONARY DISEASE
     Dosage: 1 PUFF, TWO TIMES A DAY
     Route: 055
     Dates: start: 20130213
  2. SYMBICORT [Suspect]
     Indication: DYSPNOEA
     Dosage: 1 PUFF, TWO TIMES A DAY
     Route: 055
     Dates: start: 20130213

REACTIONS (2)
  - Urine abnormality [Unknown]
  - Off label use [Unknown]
